FAERS Safety Report 5023503-8 (Version None)
Quarter: 2006Q2

REPORT INFORMATION
  Report Type: 
  Country: None (occurrence: None)
  Receive Date: 20060612
  Receipt Date: 20060329
  Transmission Date: 20061013
  Serious: Yes (Other)
  Sender: FDA-Public Use
  Company Number: US-GLAXOSMITHKLINE-A0599525A

PATIENT
  Age: 59 Year
  Sex: Male
  Weight: 69.1 kg

DRUGS (5)
  1. REQUIP [Suspect]
     Indication: PARKINSON'S DISEASE
     Dosage: 2MG THREE TIMES PER DAY
     Route: 048
     Dates: start: 20060115
  2. CARDIZEM [Concomitant]
     Indication: HYPERTENSION
     Dosage: 180MG PER DAY
     Route: 048
     Dates: start: 20000101
  3. TEVETEN [Concomitant]
     Indication: HYPERTENSION
     Dosage: 600MG PER DAY
     Route: 048
     Dates: start: 20030101, end: 20060320
  4. CRESTOR [Concomitant]
     Indication: HYPERLIPIDAEMIA
     Dosage: 10MG PER DAY
     Route: 048
     Dates: start: 20040101
  5. PREVACID [Concomitant]
     Indication: GASTROOESOPHAGEAL REFLUX DISEASE
     Dosage: 30MG PER DAY
     Route: 048
     Dates: start: 20051001

REACTIONS (2)
  - LABILE BLOOD PRESSURE [None]
  - SYNCOPE [None]
